FAERS Safety Report 4990680-4 (Version None)
Quarter: 2006Q2

REPORT INFORMATION
  Report Type: 
  Country: None (occurrence: None)
  Receive Date: 20060428
  Receipt Date: 20060412
  Transmission Date: 20061013
  Serious: Yes (Disabling)
  Sender: FDA-Public Use
  Company Number: BR-2006-008762

PATIENT
  Age: 36 Year
  Sex: Female

DRUGS (1)
  1. BETAFERON (INTERFERON BETA -1B) INJECTION, 250UG [Suspect]
     Indication: MULTIPLE SCLEROSIS
     Dosage: 1 ML SUBCUTANEOUS
     Route: 058
     Dates: start: 20030101

REACTIONS (2)
  - BEDRIDDEN [None]
  - INTERVERTEBRAL DISC PROTRUSION [None]
